FAERS Safety Report 6283563-3 (Version None)
Quarter: 2009Q3

REPORT INFORMATION
  Report Type: 
  Country: None (occurrence: None)
  Receive Date: 20090724
  Receipt Date: 20090430
  Transmission Date: 20100115
  Serious: Yes (Hospitalization)
  Sender: FDA-Public Use
  Company Number: US-ALEXION-A200900340

PATIENT
  Sex: Female

DRUGS (2)
  1. SOLIRIS [Suspect]
     Indication: PAROXYSMAL NOCTURNAL HAEMOGLOBINURIA
     Dosage: 600 MG, QWK X4
     Route: 042
     Dates: start: 20081217, end: 20090109
  2. SOLIRIS [Suspect]
     Dosage: 900 MG, Q2WK
     Route: 042
     Dates: start: 20090116

REACTIONS (6)
  - ASTHENIA [None]
  - BACK PAIN [None]
  - DIZZINESS [None]
  - EXTRAVASCULAR HAEMOLYSIS [None]
  - FATIGUE [None]
  - HYPOTENSION [None]
